FAERS Safety Report 22067467 (Version 1)
Quarter: 2023Q1

REPORT INFORMATION
  Report Type: Spontaneous
  Country: FR (occurrence: FR)
  Receive Date: 20230307
  Receipt Date: 20230307
  Transmission Date: 20230417
  Serious: Yes (Hospitalization, Other)
  Sender: FDA-Public Use
  Company Number: FR-AFSSAPS-MP2023000487

PATIENT
  Age: 67 Year
  Sex: Male
  Weight: 68.6 kg

DRUGS (12)
  1. CARBOPLATIN [Suspect]
     Active Substance: CARBOPLATIN
     Indication: Lung adenocarcinoma stage IV
     Dosage: UNK 3 WEEK (AUC5)
     Route: 042
     Dates: start: 20230127, end: 20230127
  2. CARBOPLATIN [Suspect]
     Active Substance: CARBOPLATIN
     Dosage: UNK 3 WEEK (AUC4 )
     Route: 042
     Dates: start: 20230217, end: 20230217
  3. PEMETREXED [Suspect]
     Active Substance: PEMETREXED
     Indication: Lung adenocarcinoma stage IV
     Dosage: 500 MILLIGRAM/SQ. METER (3 WEEK)
     Route: 042
     Dates: start: 20230127, end: 20230127
  4. PEMETREXED [Suspect]
     Active Substance: PEMETREXED
     Dosage: 925 MILLIGRAM (3 WEEK)
     Route: 042
     Dates: start: 20230217, end: 20230217
  5. KEYTRUDA [Suspect]
     Active Substance: PEMBROLIZUMAB
     Indication: Lung adenocarcinoma stage IV
     Dosage: 200 MILLIGRAM(3 WEEK)
     Route: 042
     Dates: start: 20230127, end: 20230127
  6. KEYTRUDA [Suspect]
     Active Substance: PEMBROLIZUMAB
     Dosage: 200 MILLIGRAM(3 WEEK)
     Route: 042
     Dates: start: 20230217, end: 20230217
  7. IOMERON [Suspect]
     Active Substance: IOMEPROL
     Indication: Computerised tomogram
     Dosage: 80 MILLILITER(1 TOTAL)
     Route: 042
     Dates: start: 20230125, end: 20230125
  8. LEVOTHYROXINE SODIUM [Concomitant]
     Active Substance: LEVOTHYROXINE SODIUM
     Indication: Hypothyroidism
     Dosage: 25 MICROGRAM, ONCE A DAY
     Route: 048
  9. OMEPRAZOLE [Concomitant]
     Active Substance: OMEPRAZOLE
     Indication: Prophylaxis against gastrointestinal ulcer
     Dosage: 20 MILLIGRAM, ONCE A DAY
     Route: 048
  10. IRBESARTAN [Concomitant]
     Active Substance: IRBESARTAN
     Indication: Hypertension
     Dosage: 150 MILLIGRAM, ONCE A DAY
     Route: 048
  11. SILDENAFIL [Concomitant]
     Active Substance: SILDENAFIL
     Indication: Product used for unknown indication
     Dosage: 100 MILLIGRAM, ONCE A DAY
     Route: 048
  12. ASPIRIN [Concomitant]
     Active Substance: ASPIRIN
     Indication: Thrombosis prophylaxis
     Dosage: 100 MILLIGRAM, ONCE A DAY
     Route: 048

REACTIONS (2)
  - Febrile neutropenia [Recovered/Resolved]
  - Rash maculo-papular [Recovering/Resolving]

NARRATIVE: CASE EVENT DATE: 20230207
